FAERS Safety Report 4654998-7 (Version None)
Quarter: 2005Q2

REPORT INFORMATION
  Report Type: 
  Country: None (occurrence: None)
  Receive Date: 20050506
  Receipt Date: 20050427
  Transmission Date: 20051028
  Serious: Yes (Other)
  Sender: FDA-Public Use
  Company Number: PHEH2005US05117

PATIENT
  Age: 62 Year
  Sex: Female

DRUGS (4)
  1. NORVASC [Concomitant]
  2. CLONIDINE [Concomitant]
  3. HYDRALAZINE [Concomitant]
  4. FORADIL [Suspect]
     Route: 048

REACTIONS (4)
  - ABDOMINAL PAIN UPPER [None]
  - GALLBLADDER OPERATION [None]
  - INSOMNIA [None]
  - MEDICATION ERROR [None]
